FAERS Safety Report 7931018-X (Version None)
Quarter: 2011Q4

REPORT INFORMATION
  Report Type: 
  Country: None (occurrence: None)
  Receive Date: 20111121
  Receipt Date: 20111111
  Transmission Date: 20120403
  Serious: Yes (Death)
  Sender: FDA-Public Use
  Company Number: US-CELGENEUS-163-21880-11090534

PATIENT
  Sex: Female

DRUGS (16)
  1. VALTREX [Concomitant]
     Route: 065
  2. COMBIGAN [Concomitant]
     Route: 065
  3. PREDNISONE TAB [Concomitant]
     Route: 065
  4. ZOCOR [Concomitant]
     Route: 065
  5. REVLIMID [Suspect]
     Indication: MULTIPLE MYELOMA
     Dosage: 25 MILLIGRAM
     Route: 048
     Dates: start: 20070202
  6. DILAUDID [Concomitant]
     Route: 065
  7. ASPIRIN [Concomitant]
     Route: 065
  8. BUTALBITAL [Concomitant]
     Route: 065
  9. IMDUR [Concomitant]
     Route: 065
  10. MAGNESIUM  OXIDE [Concomitant]
     Route: 065
  11. PROMETHAZINE [Concomitant]
     Route: 065
  12. REVLIMID [Suspect]
     Dosage: 2.5 MILLIGRAM
     Route: 048
     Dates: start: 20110301
  13. CELEXA [Concomitant]
     Route: 065
  14. INDERAL [Concomitant]
     Route: 065
  15. MELPHALAN HYDROCHLORIDE [Concomitant]
     Route: 065
  16. SIMVASTATIN [Concomitant]
     Route: 065

REACTIONS (1)
  - RENAL FAILURE [None]
